FAERS Safety Report 22223663 (Version 3)
Quarter: 2023Q2

REPORT INFORMATION
  Report Type: Spontaneous
  Country: US (occurrence: US)
  Receive Date: 20230418
  Receipt Date: 20230428
  Transmission Date: 20230721
  Serious: No
  Sender: FDA-Public Use
  Company Number: US-PFIZER INC-PV202200029138

PATIENT
  Age: 50 Year
  Sex: Female
  Weight: 65.306 kg

DRUGS (3)
  1. EUCRISA [Suspect]
     Active Substance: CRISABOROLE
     Indication: Rash
     Dosage: 2 %, 2X/DAY
     Route: 061
     Dates: start: 2022
  2. EUCRISA [Suspect]
     Active Substance: CRISABOROLE
     Indication: Pruritus
  3. EUCRISA [Suspect]
     Active Substance: CRISABOROLE
     Indication: Eczema

REACTIONS (1)
  - Drug ineffective [Unknown]
